FAERS Safety Report 6199035-0 (Version None)
Quarter: 2009Q2

REPORT INFORMATION
  Report Type: 
  Country: None (occurrence: None)
  Receive Date: 20090520
  Receipt Date: 20090520
  Transmission Date: 20091009
  Serious: No
  Sender: FDA-Public Use
  Company Number: None

PATIENT
  Age: 83 Year
  Sex: Female
  Weight: 97.5 kg

DRUGS (1)
  1. HEPARIN [Suspect]
     Indication: THERAPEUTIC PROCEDURE
     Dosage: 9000 UNITS TOTAL IV BOLUS
     Route: 040
     Dates: start: 20090504, end: 20090504

REACTIONS (1)
  - DRUG INEFFECTIVE [None]
